FAERS Safety Report 8305120-7 (Version None)
Quarter: 2012Q2

REPORT INFORMATION
  Report Type: 
  Country: None (occurrence: None)
  Receive Date: 20120416
  Receipt Date: 20120404
  Transmission Date: 20120825
  Serious: Yes (Hospitalization)
  Sender: FDA-Public Use
  Company Number: AEUSA201200199

PATIENT
  Age: 68 Year
  Sex: Female

DRUGS (8)
  1. THIAMINE HCL [Concomitant]
  2. GABAPENTIN [Concomitant]
  3. COLACE [Concomitant]
  4. IMMUNE GLOBULIN (HUMAN) [Suspect]
     Indication: GUILLAIN-BARRE SYNDROME
     Dosage: 20 GM;QD;IV
     Route: 042
     Dates: start: 20120327, end: 20120331
  5. IMMUNE GLOBULIN (HUMAN) [Suspect]
     Indication: GUILLAIN-BARRE SYNDROME
     Dosage: 5 GM;QD;IV
     Route: 042
     Dates: start: 20120327, end: 20120331
  6. FOLIC ACID [Concomitant]
  7. MULTI-VITAMINS [Concomitant]
  8. NORVASC [Concomitant]

REACTIONS (4)
  - HAEMOLYTIC ANAEMIA [None]
  - URINARY TRACT INFECTION [None]
  - KLEBSIELLA TEST POSITIVE [None]
  - ESCHERICHIA TEST POSITIVE [None]
